FAERS Safety Report 7425804-2 (Version None)
Quarter: 2011Q2

REPORT INFORMATION
  Report Type: 
  Country: None (occurrence: None)
  Receive Date: 20110420
  Receipt Date: 20110415
  Transmission Date: 20111010
  Serious: Yes (Life-Threatening, Hospitalization, Other)
  Sender: FDA-Public Use
  Company Number: JP-PFIZER INC-2011049925

PATIENT
  Age: 82 Year
  Sex: Female
  Weight: 42 kg

DRUGS (14)
  1. LYRICA [Suspect]
     Indication: DIABETIC NEUROPATHY
     Dosage: 75 MG/DAY
     Route: 048
     Dates: start: 20110201, end: 20110306
  2. TAKEPRON [Concomitant]
     Dosage: 30 MG DAILY
  3. MICARDIS [Concomitant]
     Dosage: 40 MG DAILY
  4. GOSHAJINKIGAN [Concomitant]
     Dosage: 7.5 MG, UNK
  5. LOXONIN [Concomitant]
     Dosage: 60 MG, AS NEEDED
  6. CELECOXIB [Concomitant]
     Dosage: 200 MG DAILY
  7. WARFARIN [Concomitant]
     Dosage: 2 MG DAILY
  8. VOGLIBOSE [Concomitant]
     Dosage: 0.9 MG DAILY
  9. CALBLOCK [Concomitant]
     Dosage: 8 MG DAILY
  10. EPALRESTAT [Concomitant]
     Dosage: 150 MG DAILY
  11. LIPITOR [Concomitant]
     Dosage: 10 MG DAILY
  12. EVAMYL [Concomitant]
     Dosage: 2 MG DAILY
  13. PRORNER [Concomitant]
     Dosage: 120 MMG DAILY
  14. NOVORAPID [Concomitant]
     Indication: DIABETES MELLITUS
     Route: 058

REACTIONS (5)
  - RESPIRATORY FAILURE [None]
  - HYPOXIA [None]
  - INTERSTITIAL LUNG DISEASE [None]
  - SUBCUTANEOUS EMPHYSEMA [None]
  - ALTERED STATE OF CONSCIOUSNESS [None]
